FAERS Safety Report 7282132-6 (Version None)
Quarter: 2011Q1

REPORT INFORMATION
  Report Type: 
  Country: None (occurrence: None)
  Receive Date: 20110208
  Receipt Date: 20110203
  Transmission Date: 20110831
  Serious: Yes (Hospitalization, Other)
  Sender: FDA-Public Use
  Company Number: US-PFIZER INC-2010153493

PATIENT
  Sex: Female

DRUGS (2)
  1. CHANTIX [Suspect]
     Indication: SMOKING CESSATION THERAPY
     Dosage: STARTER MONTH PACK
     Dates: start: 20071101
  2. CHANTIX [Suspect]
     Dosage: CONTINUING MONTH PACKS
     Dates: start: 20081001, end: 20090101

REACTIONS (11)
  - ANXIETY [None]
  - AGGRESSION [None]
  - SUICIDE ATTEMPT [None]
  - PSYCHOTIC DISORDER [None]
  - DEPRESSION [None]
  - MENTAL DISORDER [None]
  - BIPOLAR I DISORDER [None]
  - HALLUCINATION, AUDITORY [None]
  - HALLUCINATION, VISUAL [None]
  - INSOMNIA [None]
  - INTENTIONAL OVERDOSE [None]
